FAERS Safety Report 24361623 (Version 2)
Quarter: 2024Q4

REPORT INFORMATION
  Report Type: Spontaneous
  Country: CA (occurrence: CA)
  Receive Date: 20240925
  Receipt Date: 20241001
  Transmission Date: 20250114
  Serious: Yes (Hospitalization)
  Sender: CELLTRION
  Company Number: CA-PFIZER INC-202400257690

PATIENT

DRUGS (4)
  1. INFLECTRA [Suspect]
     Active Substance: INFLIXIMAB-DYYB
     Indication: Colitis ulcerative
     Dosage: 600 MG, EVERY 4 WEEKS
     Route: 042
     Dates: start: 20240815
  2. INFLECTRA [Suspect]
     Active Substance: INFLIXIMAB-DYYB
     Dosage: 71.28 MG, (NOT ALL DOSE ADMINISTERED), 4 WEEKS (600 MG, EVERY 4 WEEKS)
     Route: 042
     Dates: start: 20240913, end: 20240913
  3. FOLIC ACID [Concomitant]
     Active Substance: FOLIC ACID
     Dosage: 1 DF
     Dates: end: 20230601
  4. METHOTREXATE [Concomitant]
     Active Substance: METHOTREXATE
     Dosage: 12500 UG
     Route: 048
     Dates: end: 20220601

REACTIONS (7)
  - Obstructive airways disorder [Unknown]
  - Erythema [Unknown]
  - Oxygen saturation decreased [Unknown]
  - Chest discomfort [Unknown]
  - Arthralgia [Not Recovered/Not Resolved]
  - Stress [Not Recovered/Not Resolved]
  - Incorrect dose administered [Unknown]

NARRATIVE: CASE EVENT DATE: 20240901
